FAERS Safety Report 4959379-4 (Version None)
Quarter: 2006Q1

REPORT INFORMATION
  Report Type: 
  Country: None (occurrence: None)
  Receive Date: 20060331
  Receipt Date: 20050311
  Transmission Date: 20060701
  Serious: Yes (Hospitalization, Other)
  Sender: FDA-Public Use
  Company Number: US-MERCK-0503USA02600

PATIENT
  Age: 49 Year
  Sex: Male
  Weight: 98 kg

DRUGS (7)
  1. VIOXX [Suspect]
     Indication: RHEUMATOID ARTHRITIS
     Route: 048
     Dates: start: 19990101, end: 20040101
  2. INSULIN [Concomitant]
     Indication: DIABETES MELLITUS
     Route: 065
  3. GLUCOPHAGE [Concomitant]
     Indication: DIABETES MELLITUS
     Route: 065
  4. LIPITOR [Concomitant]
     Route: 065
     Dates: start: 20000101
  5. ACTOS [Concomitant]
     Indication: DIABETES MELLITUS
     Route: 065
  6. CELEBREX [Concomitant]
     Indication: RHEUMATOID ARTHRITIS
     Route: 065
  7. SYNTHROID [Concomitant]
     Indication: DIABETES MELLITUS
     Route: 065

REACTIONS (4)
  - ARTHROPATHY [None]
  - CARDIAC DISORDER [None]
  - MYOCARDIAL INFARCTION [None]
  - OVERDOSE [None]
